FAERS Safety Report 5934645-4 (Version None)
Quarter: 2008Q4

REPORT INFORMATION
  Report Type: 
  Country: None (occurrence: None)
  Receive Date: 20081010
  Receipt Date: 20080804
  Transmission Date: 20090506
  Serious: No
  Sender: FDA-Public Use
  Company Number: 2008BM000152

PATIENT
  Age: 5 Year
  Sex: Female
  Weight: 25 kg

DRUGS (3)
  1. KUVAN [Suspect]
     Indication: PHENYLKETONURIA
     Dosage: 250 MG;QD;PO; 500 MG;QD;PO
     Route: 048
     Dates: start: 20080409, end: 20080518
  2. KUVAN [Suspect]
     Indication: PHENYLKETONURIA
     Dosage: 250 MG;QD;PO; 500 MG;QD;PO
     Route: 048
     Dates: start: 20080519, end: 20080628
  3. TEGRETOL [Concomitant]

REACTIONS (2)
  - DRUG INEFFECTIVE [None]
  - NEUTROPHIL COUNT DECREASED [None]
